FAERS Safety Report 11685238 (Version 2)
Quarter: 2015Q4

REPORT INFORMATION
  Report Type: Spontaneous
  Country: US (occurrence: US)
  Receive Date: 20151030
  Receipt Date: 20151216
  Transmission Date: 20160304
  Serious: No
  Sender: FDA-Public Use
  Company Number: US-B.I. PHARMACEUTICALS,INC./RIDGEFIELD-2015-BI-57652BP

PATIENT
  Sex: Female

DRUGS (1)
  1. COMBIVENT [Suspect]
     Active Substance: ALBUTEROL SULFATE\IPRATROPIUM BROMIDE
     Indication: LUNG DISORDER
     Dosage: DOSE PER APPLICATION: 20 MCG / 100 MCG; SPRAY
     Route: 055
     Dates: start: 2011

REACTIONS (5)
  - Feeling abnormal [Unknown]
  - Pain [Unknown]
  - Micturition disorder [Unknown]
  - Product quality issue [Unknown]
  - Hypoaesthesia [Unknown]
